FAERS Safety Report 23693646 (Version 1)
Quarter: 2024Q2

REPORT INFORMATION
  Report Type: Report from Study
  Country: US (occurrence: US)
  Receive Date: 20240401
  Receipt Date: 20240401
  Transmission Date: 20240715
  Serious: Yes (Other)
  Sender: FDA-Public Use
  Company Number: US-ABBVIE-5699029

PATIENT
  Sex: Male

DRUGS (1)
  1. VENCLEXTA [Suspect]
     Active Substance: VENETOCLAX
     Indication: Acute lymphocytic leukaemia
     Dosage: FORM STRENGTH: 100 MILLIGRAM, DURATION TEXT: FOR 14 DAYS ON THEN 14 DAYS OFF
     Route: 048

REACTIONS (2)
  - Pancytopenia [Unknown]
  - Off label use [Unknown]
